FAERS Safety Report 14343698 (Version 8)
Quarter: 2019Q3

REPORT INFORMATION
  Report Type: Spontaneous
  Country: US (occurrence: US)
  Receive Date: 20180102
  Receipt Date: 20190717
  Transmission Date: 20191004
  Serious: No
  Sender: FDA-Public Use
  Company Number: US-PFIZER INC-2018000272

PATIENT
  Age: 65 Year
  Sex: Male

DRUGS (2)
  1. CELEBREX [Concomitant]
     Active Substance: CELECOXIB
     Dosage: UNK
  2. LYRICA [Suspect]
     Active Substance: PREGABALIN
     Dosage: 300 MG, UNK

REACTIONS (6)
  - Pain [Unknown]
  - Intentional product use issue [Unknown]
  - Movement disorder [Unknown]
  - Vision blurred [Unknown]
  - Product dose omission [Unknown]
  - Intentional product misuse [Unknown]

NARRATIVE: CASE EVENT DATE: 20171228
